FAERS Safety Report 21679195 (Version 1)
Quarter: 2022Q4

REPORT INFORMATION
  Report Type: Spontaneous
  Country: DE (occurrence: DE)
  Receive Date: 20221204
  Receipt Date: 20221204
  Transmission Date: 20230113
  Serious: Yes (Death)
  Sender: FDA-Public Use
  Company Number: DE-STRIDES ARCOLAB LIMITED-2022SP016242

PATIENT
  Age: 40 Year
  Sex: Male

DRUGS (7)
  1. DOXORUBICIN [Suspect]
     Active Substance: DOXORUBICIN
     Indication: T-cell lymphoma
     Dosage: UNK; (4 COURSES OF CHOP REGIMEN)
     Route: 065
  2. PREDNISOLONE [Suspect]
     Active Substance: PREDNISOLONE
     Indication: T-cell lymphoma
     Dosage: UNK; (4 COURSES OF CHOP REGIMEN)
     Route: 065
  3. DEXAMETHASONE [Suspect]
     Active Substance: DEXAMETHASONE
     Indication: T-cell lymphoma
     Dosage: UNK; (4 COURSES OF CHOP REGIMEN)
     Route: 065
  4. CYCLOPHOSPHAMIDE [Suspect]
     Active Substance: CYCLOPHOSPHAMIDE
     Indication: T-cell lymphoma
     Dosage: UNK; (4 COURSES OF CHOP REGIMEN)
     Route: 065
  5. CISPLATIN [Suspect]
     Active Substance: CISPLATIN
     Indication: T-cell lymphoma
     Dosage: UNK; (2 COURSES OF GDP REGIMEN)
     Route: 065
  6. VINCRISTINE [Suspect]
     Active Substance: VINCRISTINE
     Indication: T-cell lymphoma
     Dosage: UNK; (4 COURSES OF CHOP REGIMEN)
     Route: 065
  7. GEMCITABINE [Suspect]
     Active Substance: GEMCITABINE
     Indication: T-cell lymphoma
     Dosage: UNK (2 COURSES OF GDP REGIMEN)
     Route: 065

REACTIONS (1)
  - Drug ineffective [Fatal]
